FAERS Safety Report 23999394 (Version 2)
Quarter: 2024Q3

REPORT INFORMATION
  Report Type: Spontaneous
  Country: JP (occurrence: JP)
  Receive Date: 20240621
  Receipt Date: 20240723
  Transmission Date: 20241017
  Serious: Yes (Hospitalization)
  Sender: PFIZER
  Company Number: JP-PFIZER INC-PV202400081576

PATIENT
  Age: 6 Decade
  Sex: Female
  Weight: 74.2 kg

DRUGS (7)
  1. LORBRENA [Suspect]
     Active Substance: LORLATINIB
     Indication: Lung neoplasm malignant
     Dosage: 25 MG, ALTERNATE DAY
     Dates: start: 20200622, end: 20230410
  2. LORBRENA [Suspect]
     Active Substance: LORLATINIB
     Dosage: 25 MG, ALTERNATE DAY
     Route: 048
     Dates: start: 20240513, end: 2024
  3. BENZBROMARONE [Concomitant]
     Active Substance: BENZBROMARONE
     Dosage: 50 MG, 1X/DAY
  4. EZETIMIBE [Concomitant]
     Active Substance: EZETIMIBE
     Dosage: 10 MG, 1X/DAY
  5. FUROSEMIDE [Concomitant]
     Active Substance: FUROSEMIDE
     Indication: Oedema
     Dosage: 20 MG, 1X/DAY
  6. OLMESARTAN MEDOXOMIL [Concomitant]
     Active Substance: OLMESARTAN MEDOXOMIL
     Dosage: 5 MG, 1X/DAY
  7. ROSUVASTATIN [Concomitant]
     Active Substance: ROSUVASTATIN
     Dosage: 2.5 MG, 1X/DAY

REACTIONS (4)
  - Second primary malignancy [Not Recovered/Not Resolved]
  - Acute lymphocytic leukaemia [Not Recovered/Not Resolved]
  - Off label use [Unknown]
  - Cognitive disorder [Not Recovered/Not Resolved]

NARRATIVE: CASE EVENT DATE: 20200622
